FAERS Safety Report 5261330-7 (Version None)
Quarter: 2007Q1

REPORT INFORMATION
  Report Type: 
  Country: None (occurrence: None)
  Receive Date: 20070307
  Receipt Date: 20070222
  Transmission Date: 20070707
  Serious: Yes (Other)
  Sender: FDA-Public Use
  Company Number: 2007BI001877

PATIENT
  Age: 43 Year
  Sex: Female
  Weight: 72.5755 kg

DRUGS (4)
  1. AVONEX [Suspect]
     Indication: MULTIPLE SCLEROSIS
     Dosage: 30 UG;QW;IM
     Route: 030
     Dates: start: 20031201
  2. LEXAPRO [Concomitant]
  3. PROVIGIL [Concomitant]
  4. ULTRAM [Concomitant]

REACTIONS (2)
  - PAIN [None]
  - SQUAMOUS CELL CARCINOMA [None]
